FAERS Safety Report 7782881-7 (Version None)
Quarter: 2011Q3

REPORT INFORMATION
  Report Type: 
  Country: None (occurrence: None)
  Receive Date: 20110928
  Receipt Date: 20110920
  Transmission Date: 20111222
  Serious: No
  Sender: FDA-Public Use
  Company Number: US-ASTELLAS-2011US003023

PATIENT
  Sex: Female

DRUGS (1)
  1. ERLOTINIB HYDROCHLORIDE [Suspect]
     Indication: LUNG CARCINOMA CELL TYPE UNSPECIFIED STAGE 0
     Dosage: 150 MG, UID/QD
     Route: 048
     Dates: start: 20110528

REACTIONS (7)
  - SKIN EXFOLIATION [None]
  - ALOPECIA [None]
  - FATIGUE [None]
  - HEADACHE [None]
  - RASH [None]
  - DYSPEPSIA [None]
  - ABDOMINAL PAIN [None]
